FAERS Safety Report 9160153 (Version 2)
Quarter: 2013Q2

REPORT INFORMATION
  Report Type: Spontaneous
  Country: JP (occurrence: None)
  Receive Date: 20130213
  Receipt Date: 20130401
  Transmission Date: 20140414
  Serious: No
  Sender: FDA-Public Use
  Company Number: TCI2013A00172

PATIENT
  Sex: Male

DRUGS (6)
  1. LANSAP [Suspect]
     Indication: HELICOBACTER INFECTION
     Dosage: 1 CARD  (0.5 CARD, 2 IN 1 D)
     Route: 048
     Dates: start: 20130108, end: 20130115
  2. UNISIA COMBINATION TABLETS [Concomitant]
  3. HD (CANDESARTAN CILEXETIL, AMLODIPINE BESILATE) [Concomitant]
  4. MEVALOTIN (PRAVASTATIN SODIUM) [Concomitant]
  5. GLUBES (MITIGLINID CALCIUM/VOGLIBOSE) (ORAL ANTIDIABETICS) [Concomitant]
  6. METGLUCO (METFORMIN HYDROCHLORIDE) [Concomitant]

REACTIONS (2)
  - Hallucination [None]
  - Diplopia [None]
